FAERS Safety Report 13557515 (Version 3)
Quarter: 2017Q4

REPORT INFORMATION
  Report Type: Spontaneous
  Country: US (occurrence: US)
  Receive Date: 20170518
  Receipt Date: 20171212
  Transmission Date: 20180320
  Serious: No
  Sender: FDA-Public Use
  Company Number: US-TEVA-769002ACC

PATIENT
  Sex: Female

DRUGS (10)
  1. CABERGOLINE. [Concomitant]
     Active Substance: CABERGOLINE
  2. POTASSIUM [Concomitant]
     Active Substance: POTASSIUM
  3. ALLEGRA-D [Concomitant]
     Active Substance: FEXOFENADINE\PSEUDOEPHEDRINE
  4. VITAMIN D3 [Concomitant]
     Active Substance: CHOLECALCIFEROL
  5. ATOVAQUONE. [Concomitant]
     Active Substance: ATOVAQUONE
  6. KETOPROFEN. [Concomitant]
     Active Substance: KETOPROFEN
  7. COPAXONE [Suspect]
     Active Substance: GLATIRAMER ACETATE
     Indication: MULTIPLE SCLEROSIS
     Dosage: PREFILLED SYRINGE
     Route: 058
     Dates: start: 20160323
  8. ASPIRIN. [Concomitant]
     Active Substance: ASPIRIN
  9. ESCITALOPRAM [Concomitant]
     Active Substance: ESCITALOPRAM OXALATE
  10. LACTAID [Concomitant]
     Active Substance: LACTASE

REACTIONS (4)
  - Injection site swelling [Not Recovered/Not Resolved]
  - Injection site reaction [Unknown]
  - Fatigue [Unknown]
  - Injection site induration [Unknown]
